FAERS Safety Report 22219729 (Version 1)
Quarter: 2023Q2

REPORT INFORMATION
  Report Type: Report from Study
  Country: US (occurrence: US)
  Receive Date: 20230417
  Receipt Date: 20230417
  Transmission Date: 20230721
  Serious: Yes (Other)
  Sender: FDA-Public Use
  Company Number: US-ABBVIE-4731175

PATIENT
  Age: 66 Year
  Sex: Female

DRUGS (1)
  1. HUMIRA [Suspect]
     Active Substance: ADALIMUMAB
     Indication: Product used for unknown indication
     Route: 058
     Dates: start: 20220915

REACTIONS (3)
  - Retinal detachment [Unknown]
  - Cardiac disorder [Recovered/Resolved]
  - Eye injury [Recovering/Resolving]

NARRATIVE: CASE EVENT DATE: 20220915
